FAERS Safety Report 4960443-4 (Version None)
Quarter: 2006Q2

REPORT INFORMATION
  Report Type: 
  Country: None (occurrence: None)
  Receive Date: 20060403
  Receipt Date: 20060329
  Transmission Date: 20061013
  Serious: Yes (Hospitalization, Disabling, Other)
  Sender: FDA-Public Use
  Company Number: US-GLAXOSMITHKLINE-A0599504A

PATIENT
  Age: 63 Year
  Sex: Female

DRUGS (7)
  1. MALARONE [Suspect]
     Indication: MALARIA
     Dosage: 1TAB PER DAY
     Route: 048
     Dates: start: 20060312, end: 20060318
  2. SYNTHROID [Concomitant]
  3. ZOCOR [Concomitant]
  4. WELLBUTRIN [Concomitant]
  5. ZETIA [Concomitant]
  6. VIT K [Concomitant]
  7. COUMADIN [Concomitant]

REACTIONS (2)
  - ABDOMINAL PAIN [None]
  - INTERNATIONAL NORMALISED RATIO DECREASED [None]
